FAERS Safety Report 21231700 (Version 1)
Quarter: 2022Q3

REPORT INFORMATION
  Report Type: Spontaneous
  Country: NL (occurrence: NL)
  Receive Date: 20220819
  Receipt Date: 20220819
  Transmission Date: 20221026
  Serious: Yes (Other)
  Sender: FDA-Public Use
  Company Number: None

PATIENT
  Sex: Male
  Weight: 98 kg

DRUGS (2)
  1. AMOXICILLIN [Suspect]
     Active Substance: AMOXICILLIN
     Indication: Pneumonia
     Dosage: 1500 MILLIGRAM DAILY; 3 X A DAY 1 PIECE, AMOXICILLINE CAPSULE 500MG / BRAND NAME NOT SPECIFIED, DURA
     Dates: start: 20220714, end: 20220716
  2. SIMVASTATIN [Concomitant]
     Active Substance: SIMVASTATIN
     Indication: Product used for unknown indication
     Dosage: 40 MG (MILLIGRAM), SIMVASTATINE TABLET FO 40MG / BRAND NAME NOT SPECIFIED, THERAPY START DATE AND EN

REACTIONS (1)
  - Haematochezia [Recovered/Resolved]
